FAERS Safety Report 8454994-8 (Version None)
Quarter: 2012Q2

REPORT INFORMATION
  Report Type: 
  Country: None (occurrence: None)
  Receive Date: 20120621
  Receipt Date: 20120611
  Transmission Date: 20120825
  Serious: Yes (Hospitalization)
  Sender: FDA-Public Use
  Company Number: US-VERTEX PHARMACEUTICALS INC.-AE-2012-008570

PATIENT
  Sex: Female
  Weight: 83.99 kg

DRUGS (1)
  1. INCIVEK [Suspect]
     Indication: HEPATITIS C
     Route: 048
     Dates: start: 20120203

REACTIONS (5)
  - PYREXIA [None]
  - DYSPHONIA [None]
  - VASCULAR INJURY [None]
  - PLATELET COUNT DECREASED [None]
  - RASH [None]
